FAERS Safety Report 5549795-4 (Version None)
Quarter: 2007Q4

REPORT INFORMATION
  Report Type: 
  Country: None (occurrence: None)
  Receive Date: 20071212
  Receipt Date: 20071204
  Transmission Date: 20080405
  Serious: Yes (Other)
  Sender: FDA-Public Use
  Company Number: US-JNJFOC-20071201809

PATIENT
  Age: 40 Year
  Sex: Female
  Weight: 85.73 kg

DRUGS (10)
  1. REMICADE [Suspect]
     Indication: CROHN'S DISEASE
     Route: 042
  2. ENTOCORT EC [Concomitant]
     Indication: CROHN'S DISEASE
  3. PROTONIX [Concomitant]
     Indication: CROHN'S DISEASE
  4. BIRTH CONTROL PILLS [Concomitant]
  5. FLONASE [Concomitant]
  6. VITAMIN CAP [Concomitant]
  7. CALCIUM SUPPLEMENT [Concomitant]
  8. ALEGRA [Concomitant]
  9. CITALOPRAM HYDROBROMIDE [Concomitant]
  10. VITAMIN B-12 [Concomitant]

REACTIONS (1)
  - BREAST CANCER [None]
